FAERS Safety Report 6192630-4 (Version None)
Quarter: 2009Q2

REPORT INFORMATION
  Report Type: 
  Country: None (occurrence: None)
  Receive Date: 20090514
  Receipt Date: 20090506
  Transmission Date: 20091009
  Serious: No
  Sender: FDA-Public Use
  Company Number: 2009004691

PATIENT
  Sex: Male

DRUGS (3)
  1. FENTORA [Suspect]
     Indication: CLUSTER HEADACHE
     Dosage: BU
     Route: 002
  2. FENTORA [Suspect]
     Indication: PAIN
     Dosage: BU
     Route: 002
  3. OXYCONTIN [Concomitant]

REACTIONS (1)
  - DRUG PRESCRIBING ERROR [None]
